FAERS Safety Report 7264844-3 (Version None)
Quarter: 2011Q1

REPORT INFORMATION
  Report Type: 
  Country: None (occurrence: None)
  Receive Date: 20110119
  Receipt Date: 20110107
  Transmission Date: 20110831
  Serious: Yes (Other)
  Sender: FDA-Public Use
  Company Number: 2011SP001839

PATIENT
  Age: 16 Year
  Sex: Male

DRUGS (1)
  1. CLARINEX-D 12 HOUR [Suspect]
     Indication: SINUS CONGESTION
     Dosage: (10 MG; ONCE; PO) (5 MG; PRN; PO)
     Route: 048
     Dates: start: 20110107

REACTIONS (3)
  - LIP SWELLING [None]
  - PARAESTHESIA ORAL [None]
  - SWELLING FACE [None]
